FAERS Safety Report 25942439 (Version 2)
Quarter: 2025Q4

REPORT INFORMATION
  Report Type: Spontaneous
  Country: US (occurrence: US)
  Receive Date: 20251021
  Receipt Date: 20251209
  Transmission Date: 20260118
  Serious: Yes (Other)
  Sender: ELI LILLY AND COMPANY
  Company Number: US-ELI_LILLY_AND_COMPANY-US202510012988

PATIENT
  Age: 83 Year
  Sex: Female

DRUGS (1)
  1. DULOXETINE HYDROCHLORIDE [Suspect]
     Active Substance: DULOXETINE HYDROCHLORIDE
     Indication: Depression
     Dosage: UNK, UNKNOWN
     Route: 048

REACTIONS (5)
  - Suicidal ideation [Recovered/Resolved]
  - Mental disorder [Recovered/Resolved]
  - Depression [Recovered/Resolved]
  - Malaise [Recovered/Resolved]
  - Drug hypersensitivity [Unknown]
